FAERS Safety Report 12252445 (Version 1)
Quarter: 2016Q2

REPORT INFORMATION
  Report Type: Spontaneous
  Country: US (occurrence: US)
  Receive Date: 20160411
  Receipt Date: 20160411
  Transmission Date: 20160815
  Serious: No
  Sender: FDA-Public Use
  Company Number: US-SUN PHARMACEUTICAL INDUSTRIES LTD-2016US-112432

PATIENT
  Sex: Female

DRUGS (1)
  1. VALSARTAN. [Suspect]
     Active Substance: VALSARTAN
     Indication: HYPERTENSION
     Dosage: UNK
     Route: 065
     Dates: start: 201511

REACTIONS (6)
  - Product commingling [Unknown]
  - Wrong drug administered [None]
  - Circumstance or information capable of leading to medication error [Unknown]
  - Hypertension [None]
  - Product label on wrong product [None]
  - Drug ineffective [Unknown]

NARRATIVE: CASE EVENT DATE: 201602
